FAERS Safety Report 8478297 (Version 2)
Quarter: 2012Q4

REPORT INFORMATION
  Report Type: 
  Country: US (occurrence: None)
  Receive Date: 20120320
  Receipt Date: 20121011
  Transmission Date: 20130627
  Serious: Yes (Hospitalization)
  Sender: FDA-Public Use
  Company Number: JPI-P-020165

PATIENT
  Age: 51 Year
  Sex: Female
  Weight: 64.41 kg

DRUGS (13)
  1. XYREM [Suspect]
     Indication: FIBROMYALGIA
     Dosage: 6 gm (3 gm, 2 in 1 D), Oral
     Dates: start: 20081128
  2. XYREM [Suspect]
     Indication: FIBROMYALGIA
     Dosage: Titrating Dose, Oral
  3. XYREM [Suspect]
     Indication: FIBROMYALGIA
     Dosage: 9 gm (4.5 gm, 2 in 1 D), Oral
     Dates: start: 20111208
  4. FENTANYL (100 MICROGRAM, POULTICE OR PATCH) [Concomitant]
  5. DESVENLAFAXINE SUCCINATE [Concomitant]
  6. LISINOPRIL [Concomitant]
  7. VITAMIN [Concomitant]
  8. DILTIAZEM HYDROCHLORIDE [Concomitant]
  9. NORTRIPTYLINE HYDROCHLORIDE [Concomitant]
  10. MORPHINE [Concomitant]
  11. SERTRALINE [Concomitant]
  12. HORMONES [Concomitant]
  13. MELATONIN [Concomitant]

REACTIONS (5)
  - Nerve compression [None]
  - Incontinence [None]
  - Sleep disorder [None]
  - Somnolence [None]
  - Insomnia [None]
